FAERS Safety Report 26064546 (Version 1)
Quarter: 2025Q4

REPORT INFORMATION
  Report Type: Spontaneous
  Country: US (occurrence: None)
  Receive Date: 20251118
  Receipt Date: 20251118
  Transmission Date: 20260118
  Serious: Yes (Other)
  Sender: FDA-CTU
  Company Number: None

PATIENT
  Age: 2 Month
  Sex: Female
  Weight: 6.75 kg

DRUGS (4)
  1. BEYFORTUS [Suspect]
     Active Substance: NIRSEVIMAB-ALIP
     Indication: Immunisation
     Dosage: 1 ML ONE TIME INTRAMUSCULAR ?
     Route: 030
     Dates: start: 20251117, end: 20251117
  2. VAXELIS [Concomitant]
     Active Substance: DIPHTHERIA AND TETANUS TOXOIDS AND ACELLULAR PERTUSSIS ADSORBED, INACTIVATED POLIOVIRUS AND HAEMOPHI
     Dates: start: 20251117, end: 20251117
  3. Prevnar20 [Concomitant]
     Dates: start: 20251117, end: 20251117
  4. ROTATEQ [Concomitant]
     Active Substance: HUMAN ROTAVIRUS A TYPE G1P7(5) STRAIN WI79 LIVE ANTIGEN\HUMAN ROTAVIRUS A TYPE G2P7(5) STRAIN SC2 LI
     Dates: start: 20251117, end: 20251117

REACTIONS (7)
  - Cyanosis [None]
  - Rash macular [None]
  - Urticaria [None]
  - Respiratory arrest [None]
  - Blood pressure decreased [None]
  - Heart rate increased [None]
  - Wheezing [None]

NARRATIVE: CASE EVENT DATE: 20251117
